FAERS Safety Report 4398313-5 (Version None)
Quarter: 2004Q3

REPORT INFORMATION
  Report Type: 
  Country: None (occurrence: None)
  Receive Date: 20040712
  Receipt Date: 20040629
  Transmission Date: 20050211
  Serious: Yes (Hospitalization)
  Sender: FDA-Public Use
  Company Number: 2004044301

PATIENT
  Age: 65 Year
  Sex: Male
  Weight: 69 kg

DRUGS (13)
  1. NEURONTIN [Suspect]
     Indication: PAIN IN EXTREMITY
     Dosage: 1800 MG (600 MG, 3 IN 1 D), ORAL
     Route: 048
     Dates: end: 20040603
  2. LISINOPRIL [Concomitant]
  3. ACETYLSALICYLIC ACID SRT [Concomitant]
  4. OXAZEPAM [Concomitant]
  5. BUPRENORPHINE HYDROCHLORIDE [Concomitant]
  6. ZIDOVUDINE [Concomitant]
  7. LAMIVUDINE (LAMIVUDINE) [Concomitant]
  8. EFAVIRENZ (EFAVIRENZ) [Concomitant]
  9. PRAVASTATIN SODIUM [Concomitant]
  10. CALCIUM ACETATE (CALCIUM ACETATE) [Concomitant]
  11. ALFUZOSIN (ALFUZOSIN) [Concomitant]
  12. DOXEPIN HYDROCHLORIDE (DOXEPIN HYDROCHLORIDE) [Concomitant]
  13. ESOMEPRAZOLE (ESOMEPRAZOLE) [Concomitant]

REACTIONS (5)
  - ASTERIXIS [None]
  - ASTHENIA [None]
  - ENCEPHALOPATHY [None]
  - METABOLIC ENCEPHALOPATHY [None]
  - TOXIC INDUCED ENCEPHALOPATHY [None]
